FAERS Safety Report 7919330-1 (Version None)
Quarter: 2011Q4

REPORT INFORMATION
  Report Type: 
  Country: None (occurrence: None)
  Receive Date: 20111115
  Receipt Date: 20111115
  Transmission Date: 20120403
  Serious: Yes (Hospitalization)
  Sender: FDA-Public Use
  Company Number: None

PATIENT
  Sex: Female
  Weight: 180 kg

DRUGS (11)
  1. PAXIL [Concomitant]
  2. OXYCONTIN [Concomitant]
  3. OXYCODONE HCL [Concomitant]
  4. ZOFRAN [Concomitant]
  5. RAD001 (EVEROLIMUS) [Suspect]
     Indication: BREAST CANCER METASTATIC
     Dosage: 5MG QDAY PO ; 2.5 MG QDAY PO
     Route: 048
     Dates: start: 20110610, end: 20111006
  6. RAD001 (EVEROLIMUS) [Suspect]
     Indication: BREAST CANCER METASTATIC
     Dosage: 5MG QDAY PO ; 2.5 MG QDAY PO
     Route: 048
     Dates: start: 20111018, end: 20111106
  7. SYNTHROID [Concomitant]
  8. TAXOL [Concomitant]
  9. ATIVAN [Concomitant]
  10. DOLGIC [Concomitant]
  11. AUGMENTIN [Concomitant]

REACTIONS (1)
  - HYDROCEPHALUS [None]
